FAERS Safety Report 8591454-8 (Version None)
Quarter: 2012Q3

REPORT INFORMATION
  Report Type: 
  Country: None (occurrence: None)
  Receive Date: 20120814
  Receipt Date: 20120718
  Transmission Date: 20120928
  Serious: No
  Sender: FDA-Public Use
  Company Number: US-BAYER-2012-072155

PATIENT
  Age: 57 Year
  Sex: Male

DRUGS (4)
  1. LEVITRA [Suspect]
     Indication: ERECTILE DYSFUNCTION
     Dosage: 20MG, BOTTLE COUNT 30S
     Route: 048
  2. ANTI-DIABETICS [Concomitant]
  3. ACTOS [Concomitant]
  4. JANUVIA [Concomitant]

REACTIONS (3)
  - NASAL CONGESTION [None]
  - HEADACHE [None]
  - ERECTILE DYSFUNCTION [None]
